FAERS Safety Report 25256810 (Version 1)
Quarter: 2025Q2

REPORT INFORMATION
  Report Type: Spontaneous
  Country: GB (occurrence: GB)
  Receive Date: 20250430
  Receipt Date: 20250430
  Transmission Date: 20250716
  Serious: Yes (Disabling)
  Sender: Haleon PLC
  Company Number: GB-MHRA-TPP12959539C11582668YC1745852552296

PATIENT
  Age: 16 Year
  Sex: Female
  Weight: 68 kg

DRUGS (5)
  1. FLUTICASONE PROPIONATE [Suspect]
     Active Substance: FLUTICASONE PROPIONATE
     Indication: Ill-defined disorder
     Dosage: TWO PUFFS ONCE DAILY?50MICROGRAMS/DOSE AQUEOUS NASAL SPRAY
     Dates: start: 20250325, end: 20250422
  2. FEXOFENADINE [Concomitant]
     Active Substance: FEXOFENADINE HYDROCHLORIDE
     Indication: Ill-defined disorder
     Dosage: TAKE ONE DAILY
     Dates: start: 20250325, end: 20250424
  3. ALBUTEROL [Concomitant]
     Active Substance: ALBUTEROL
     Indication: Ill-defined disorder
     Dates: start: 20250428
  4. FLUTICASONE FUROATE [Concomitant]
     Active Substance: FLUTICASONE FUROATE
     Indication: Ill-defined disorder
     Dosage: ONE SPRAY IN EACH NOSTRIL ONCE IN THE MORNING
     Dates: start: 20250428
  5. SERETIDE [Concomitant]
     Active Substance: FLUTICASONE PROPIONATE\SALMETEROL XINAFOATE
     Indication: Ill-defined disorder
     Dosage: INHALE 2 DOSES TWICE DAILY
     Dates: start: 20241028

REACTIONS (2)
  - Condition aggravated [Not Recovered/Not Resolved]
  - Tic [Not Recovered/Not Resolved]
